FAERS Safety Report 7099771-8 (Version None)
Quarter: 2010Q4

REPORT INFORMATION
  Report Type: 
  Country: None (occurrence: None)
  Receive Date: 20101112
  Receipt Date: 20101105
  Transmission Date: 20110411
  Serious: Yes (Hospitalization)
  Sender: FDA-Public Use
  Company Number: US-US-EMD SERONO, INC.-234834K09USA

PATIENT
  Sex: Female

DRUGS (7)
  1. REBIF [Suspect]
     Indication: MULTIPLE SCLEROSIS
     Route: 058
     Dates: start: 20090302
  2. BACLOFEN [Concomitant]
     Indication: MUSCULOSKELETAL STIFFNESS
     Route: 065
  3. LYRICA [Concomitant]
     Indication: MULTIPLE SCLEROSIS
     Route: 065
  4. HYDROCHLOROTHIAZIDE [Concomitant]
     Indication: FLUID RETENTION
     Route: 065
  5. IBUPROFEN [Concomitant]
     Indication: PAIN
     Route: 065
  6. ATIVAN [Concomitant]
     Indication: ANXIETY
     Route: 065
  7. SOLU-MEDROL [Concomitant]
     Indication: MULTIPLE SCLEROSIS
     Route: 042

REACTIONS (1)
  - HAEMOGLOBIN DECREASED [None]
